FAERS Safety Report 9311164 (Version 1)
Quarter: 2013Q2

REPORT INFORMATION
  Report Type: Spontaneous
  Country: US (occurrence: None)
  Receive Date: 20130523
  Receipt Date: 20130523
  Transmission Date: 20140414
  Serious: No
  Sender: FDA-Public Use
  Company Number: None

PATIENT
  Age: 71 Year
  Sex: Female

DRUGS (12)
  1. NITROFURANTOIN [Suspect]
     Dates: start: 20080228, end: 20110503
  2. INTERFERON BETA-1A [Suspect]
     Indication: MULTIPLE SCLEROSIS
     Dates: start: 20101109, end: 20110503
  3. PRAMIPEXOLE [Suspect]
     Dates: start: 20100326, end: 20110512
  4. AZATHIOPRINE [Concomitant]
  5. PREDNISONE [Concomitant]
  6. NEIPNTIN [Concomitant]
  7. POLYETHYLINE GLYCOL [Concomitant]
  8. FOSAMAX [Concomitant]
  9. LEVOXYL [Concomitant]
  10. ALLERGRA [Concomitant]
  11. AVENOX [Concomitant]
  12. MIRAPEX [Concomitant]

REACTIONS (4)
  - Drug-induced liver injury [None]
  - Hepatitis [None]
  - Hepatic necrosis [None]
  - Antinuclear antibody positive [None]
